FAERS Safety Report 4348818-8 (Version None)
Quarter: 2004Q2

REPORT INFORMATION
  Report Type: 
  Country: None (occurrence: None)
  Receive Date: 20040423
  Receipt Date: 20040416
  Transmission Date: 20050107
  Serious: Yes (Hospitalization, Disabling)
  Sender: FDA-Public Use
  Company Number: 2003175227ES

PATIENT
  Age: 15 Year
  Sex: Male
  Weight: 37.9 kg

DRUGS (4)
  1. GENOTROPIN [Suspect]
     Indication: RENAL FAILURE CHRONIC
     Dosage: 42 U, WEEKLY
     Dates: start: 19951201, end: 19980901
  2. AZATHIOPRINE [Suspect]
     Dosage: 25 MG, QD
     Dates: start: 19940715
  3. CALCIUM CARBONATE(CALCIUM CARBONATE) [Suspect]
     Dosage: 1.25 G, QD
     Dates: start: 19940715
  4. PREDNISONE [Suspect]
     Dosage: 7 MG, QD
     Dates: start: 19940715

REACTIONS (3)
  - CONDITION AGGRAVATED [None]
  - KNEE DEFORMITY [None]
  - TREATMENT NONCOMPLIANCE [None]
